FAERS Safety Report 5727599-7 (Version None)
Quarter: 2008Q2

REPORT INFORMATION
  Report Type: 
  Country: None (occurrence: None)
  Receive Date: 20080501
  Receipt Date: 20080501
  Transmission Date: 20081010
  Serious: Yes (Other)
  Sender: FDA-Public Use
  Company Number: None

PATIENT
  Age: 29 Year
  Sex: Female
  Weight: 54.4316 kg

DRUGS (2)
  1. XANAX [Suspect]
     Indication: HEART RATE IRREGULAR
     Dosage: .5 MG TAB ONCE DAILY AS NEED PO
     Route: 048
     Dates: start: 20070901, end: 20071007
  2. XANAX [Suspect]
     Indication: STRESS
     Dosage: .5 MG TAB ONCE DAILY AS NEED PO
     Route: 048
     Dates: start: 20070901, end: 20071007

REACTIONS (6)
  - ACNE [None]
  - DEPRESSION [None]
  - DRUG PRESCRIBING ERROR [None]
  - FEAR [None]
  - MYALGIA [None]
  - PANIC ATTACK [None]
